FAERS Safety Report 6269261-0 (Version None)
Quarter: 2009Q3

REPORT INFORMATION
  Report Type: 
  Country: None (occurrence: None)
  Receive Date: 20090713
  Receipt Date: 20090630
  Transmission Date: 20100115
  Serious: Yes (Hospitalization)
  Sender: FDA-Public Use
  Company Number: JHP200900215

PATIENT
  Age: 68 Year
  Sex: Female

DRUGS (4)
  1. DANTRIUM [Suspect]
     Dosage: 25 MG, DAILY, ORAL
     Route: 048
     Dates: start: 20080901
  2. CELECOXIB [Suspect]
     Indication: OSTEOARTHRITIS
     Dosage: 200 MG, DAILY, ORAL
     Route: 048
     Dates: start: 20090418, end: 20090429
  3. ASPARA-CA (ASPARTATE CALCIUM) [Concomitant]
  4. ARTZ-(HYALURONATE SODIUM) [Concomitant]

REACTIONS (4)
  - CHILLS [None]
  - OROPHARYNGEAL PAIN [None]
  - PNEUMONIA [None]
  - TOXIC SKIN ERUPTION [None]
